FAERS Safety Report 25528457 (Version 1)
Quarter: 2025Q3

REPORT INFORMATION
  Report Type: Spontaneous
  Country: US (occurrence: US)
  Receive Date: 20250708
  Receipt Date: 20250708
  Transmission Date: 20251020
  Serious: Yes (Hospitalization, Other)
  Sender: HIKMA
  Company Number: US-HIKMA PHARMACEUTICALS USA INC.-US-H14001-25-08194

PATIENT
  Sex: Female

DRUGS (5)
  1. BRAFTOVI [Suspect]
     Active Substance: ENCORAFENIB
     Indication: Gastrointestinal carcinoma
     Dosage: 300 MILLIGRAM, QD
     Route: 048
     Dates: start: 20250521
  2. FLUOROURACIL [Suspect]
     Active Substance: FLUOROURACIL
     Indication: Gastrointestinal carcinoma
     Route: 065
     Dates: start: 20250521
  3. LEUCOVORIN [Suspect]
     Active Substance: LEUCOVORIN\LEUCOVORIN CALCIUM
     Indication: Gastrointestinal carcinoma
     Route: 065
     Dates: start: 20250521
  4. OXALIPLATIN [Suspect]
     Active Substance: OXALIPLATIN
     Indication: Gastrointestinal carcinoma
     Route: 065
     Dates: start: 20250521
  5. VECTIBIX [Suspect]
     Active Substance: PANITUMUMAB
     Indication: Gastrointestinal carcinoma
     Dosage: 300 MILLIGRAM, QD
     Route: 065
     Dates: start: 20250521

REACTIONS (20)
  - Nasopharyngitis [Unknown]
  - Cough [Unknown]
  - Pulmonary oedema [Unknown]
  - Pyrexia [Recovered/Resolved]
  - Tachycardia [Unknown]
  - Hypokalaemia [Recovered/Resolved]
  - White blood cell count decreased [Unknown]
  - White blood cell count increased [Unknown]
  - Skin hyperpigmentation [Unknown]
  - Nail disorder [Unknown]
  - Eructation [Unknown]
  - Pain [Unknown]
  - Abdominal discomfort [Recovered/Resolved]
  - Neuropathy peripheral [Recovering/Resolving]
  - Condition aggravated [Unknown]
  - Alopecia [Unknown]
  - Fatigue [Unknown]
  - Decreased appetite [Unknown]
  - Erythema [Unknown]
  - Candida infection [Unknown]

NARRATIVE: CASE EVENT DATE: 20250521
